FAERS Safety Report 20727008 (Version 1)
Quarter: 2022Q2

REPORT INFORMATION
  Report Type: Report from Study
  Country: US (occurrence: US)
  Receive Date: 20220419
  Receipt Date: 20220419
  Transmission Date: 20220721
  Serious: Yes (Other)
  Sender: FDA-Public Use
  Company Number: US-ABBVIE-22K-163-4360765-00

PATIENT
  Age: 64 Year
  Sex: Female

DRUGS (1)
  1. SKYRIZI [Suspect]
     Active Substance: RISANKIZUMAB-RZAA
     Indication: Psoriasis
     Route: 058

REACTIONS (6)
  - Knee arthroplasty [Recovering/Resolving]
  - Knee arthroplasty [Unknown]
  - Urinary tract infection [Recovering/Resolving]
  - Full blood count abnormal [Unknown]
  - Speech disorder [Unknown]
  - Disorientation [Unknown]

NARRATIVE: CASE EVENT DATE: 20180301
